FAERS Safety Report 19896041 (Version 2)
Quarter: 2022Q4

REPORT INFORMATION
  Report Type: Spontaneous
  Country: US (occurrence: US)
  Receive Date: 20210929
  Receipt Date: 20221017
  Transmission Date: 20230113
  Serious: No
  Sender: FDA-Public Use
  Company Number: US-CELLTRION INC.-2021US008106

PATIENT

DRUGS (5)
  1. INFLECTRA [Suspect]
     Active Substance: INFLIXIMAB-DYYB
     Indication: Ankylosing spondylitis
     Dosage: FIRST LOADING DOSE
     Dates: start: 20210322
  2. COVID-19 VACCINE [Concomitant]
     Dosage: 2ND VACCINATION AT LEAST TWO WEEKS PRIOR
  3. METHOTREXATE [Concomitant]
     Active Substance: METHOTREXATE
     Dosage: UNK
  4. BENADRYL [Concomitant]
     Active Substance: DIPHENHYDRAMINE HYDROCHLORIDE
     Indication: Premedication
     Dosage: UNK
  5. TYLENOL [Concomitant]
     Active Substance: ACETAMINOPHEN
     Indication: Premedication
     Dosage: UNK

REACTIONS (6)
  - Wheezing [Unknown]
  - Feeling hot [Unknown]
  - Cold sweat [Unknown]
  - Dyspnoea [Unknown]
  - Feeling cold [Unknown]
  - Flushing [Unknown]
